FAERS Safety Report 8614547-5 (Version None)
Quarter: 2012Q3

REPORT INFORMATION
  Report Type: 
  Country: None (occurrence: None)
  Receive Date: 20120810
  Receipt Date: 20120731
  Transmission Date: 20120928
  Serious: Yes (Other)
  Sender: FDA-Public Use
  Company Number: 2012SA055303

PATIENT
  Age: 44 Year
  Sex: Female

DRUGS (1)
  1. MENTHOL / UNKNOWN /UNKNOWN [Suspect]
     Dosage: 2.5 OUNCE; UNK; TOPICAL
     Route: 061
     Dates: start: 20120730

REACTIONS (3)
  - BLISTER [None]
  - BURNING SENSATION [None]
  - PAIN [None]
